FAERS Safety Report 5293815-1 (Version None)
Quarter: 2007Q2

REPORT INFORMATION
  Report Type: 
  Country: None (occurrence: None)
  Receive Date: 20070405
  Receipt Date: 20070326
  Transmission Date: 20071010
  Serious: Yes (Hospitalization)
  Sender: FDA-Public Use
  Company Number: 2007-01581

PATIENT
  Age: 40 Year
  Sex: Female

DRUGS (4)
  1. INFED [Suspect]
     Indication: IRON DEFICIENCY ANAEMIA
     Dosage: INTRAVENOUS
     Route: 042
     Dates: start: 20070101
  2. AMLODIPINE [Concomitant]
  3. SERTRALINE [Concomitant]
  4. SUMATRIPTAN SUCCINATE [Concomitant]

REACTIONS (4)
  - EXCHANGE BLOOD TRANSFUSION [None]
  - HAEMODIALYSIS [None]
  - INTRAVASCULAR HAEMOLYSIS [None]
  - RENAL FAILURE ACUTE [None]
